FAERS Safety Report 10221256 (Version 1)
Quarter: 2014Q2

REPORT INFORMATION
  Report Type: Spontaneous
  Country: US (occurrence: US)
  Receive Date: 20140606
  Receipt Date: 20140606
  Transmission Date: 20141212
  Serious: No
  Sender: FDA-Public Use
  Company Number: US-GLAXOSMITHKLINE-A1069073A

PATIENT
  Age: 62 Year
  Sex: Female

DRUGS (7)
  1. BREO ELLIPTA [Suspect]
     Indication: WHEEZING
     Dosage: 1PUFF TWICE PER DAY
     Route: 055
     Dates: start: 20140327, end: 20140328
  2. SYNTHROID [Concomitant]
  3. ATORVASTATIN [Concomitant]
  4. NEXIUM [Concomitant]
  5. XANAX [Concomitant]
  6. VITAMIN D3 [Concomitant]
  7. STRONTIUM CHLORIDE [Concomitant]

REACTIONS (4)
  - Overdose [Recovered/Resolved]
  - Dysphonia [Recovered/Resolved]
  - Drug ineffective [Recovered/Resolved]
  - Anxiety [Recovered/Resolved]
